FAERS Safety Report 10744087 (Version 1)
Quarter: 2015Q1

REPORT INFORMATION
  Report Type: Spontaneous
  Country: US (occurrence: None)
  Receive Date: 20150126
  Receipt Date: 20150126
  Transmission Date: 20150721
  Serious: Yes (Death)
  Sender: FDA-Public Use
  Company Number: None

PATIENT
  Age: 73 Year
  Sex: Male
  Weight: 75.8 kg

DRUGS (1)
  1. VANCOMYCIN [Suspect]
     Active Substance: VANCOMYCIN
     Indication: SEPSIS
     Route: 042
     Dates: start: 20150110, end: 20150110

REACTIONS (10)
  - Respiratory arrest [None]
  - Blood pressure systolic increased [None]
  - Blood pressure systolic decreased [None]
  - Respiratory rate decreased [None]
  - Bradycardia [None]
  - Unresponsive to stimuli [None]
  - Cardiac arrest [None]
  - Anaphylactic reaction [None]
  - Pulse absent [None]
  - Atrial fibrillation [None]

NARRATIVE: CASE EVENT DATE: 20150110
